FAERS Safety Report 4300778-1 (Version None)
Quarter: 2004Q1

REPORT INFORMATION
  Report Type: 
  Country: None (occurrence: None)
  Receive Date: 20040218
  Receipt Date: 20040203
  Transmission Date: 20041129
  Serious: Yes (Death, Hospitalization)
  Sender: FDA-Public Use
  Company Number: 2003IM000789

PATIENT
  Age: 62 Year
  Sex: Male
  Weight: 88.9957 kg

DRUGS (3)
  1. ACTIMMUNE [Suspect]
     Indication: HEPATIC CIRRHOSIS
     Dosage: 200 UG;TIW;SUBCUTANEOUS
     Route: 058
     Dates: start: 20021030, end: 20030724
  2. ACTIMMUNE [Suspect]
     Indication: HEPATIC FIBROSIS
     Dosage: 200 UG;TIW;SUBCUTANEOUS
     Route: 058
     Dates: start: 20021030, end: 20030724
  3. ACTIMMUNE [Suspect]
     Indication: HEPATITIS C VIRUS
     Dosage: 200 UG;TIW;SUBCUTANEOUS
     Route: 058
     Dates: start: 20021030, end: 20030724

REACTIONS (4)
  - ALPHA 1 FOETOPROTEIN INCREASED [None]
  - ENCEPHALOPATHY [None]
  - HEPATIC NEOPLASM MALIGNANT [None]
  - HEPATORENAL SYNDROME [None]
